FAERS Safety Report 8157124-5 (Version None)
Quarter: 2012Q1

REPORT INFORMATION
  Report Type: 
  Country: None (occurrence: None)
  Receive Date: 20120222
  Receipt Date: 20120213
  Transmission Date: 20120608
  Serious: Yes (Hospitalization)
  Sender: FDA-Public Use
  Company Number: JP-NOVOPROD-329363

PATIENT
  Age: 59 Year
  Sex: Male
  Weight: 125 kg

DRUGS (12)
  1. DOXAZOSIN MESYLATE [Concomitant]
     Dosage: 12 MG, QD
     Route: 048
  2. LASIX [Concomitant]
     Dosage: 20 MG, QD
     Route: 048
  3. CALBLOCK [Concomitant]
     Dosage: 16 MG, QD
     Route: 048
  4. AMARYL [Concomitant]
     Dosage: 1 MG, QD
     Route: 048
  5. OMEPRAZOLE [Concomitant]
     Dosage: 20 MG, QD
     Route: 048
  6. AMARYL [Concomitant]
     Indication: TYPE 2 DIABETES MELLITUS
     Dosage: 4 MG, QD
     Route: 048
  7. ALLOPURINOL [Concomitant]
     Dosage: 100 MG, QD
     Route: 048
  8. CRESTOR [Concomitant]
     Dosage: 2.5 MG, QD
     Route: 048
  9. METFORMIN HCL [Concomitant]
     Indication: TYPE 2 DIABETES MELLITUS
     Dosage: 750 MG, QD
     Route: 048
  10. VICTOZA [Suspect]
     Indication: TYPE 2 DIABETES MELLITUS
     Dosage: 0.3 MG, QD
     Route: 058
     Dates: start: 20110601, end: 20110603
  11. SELBEX [Concomitant]
     Dosage: 150 MG, QD
     Route: 048
  12. OLMESARTAN MEDOXOMIL [Concomitant]
     Dosage: 20 MG, QD
     Route: 048

REACTIONS (1)
  - CEREBRAL INFARCTION [None]
